FAERS Safety Report 6875665-5 (Version None)
Quarter: 2010Q3

REPORT INFORMATION
  Report Type: 
  Country: None (occurrence: None)
  Receive Date: 20100727
  Receipt Date: 20070724
  Transmission Date: 20110219
  Serious: Yes (Other)
  Sender: FDA-Public Use
  Company Number: US-PFIZER INC-2006121982

PATIENT
  Age: 84 Year
  Sex: Female

DRUGS (7)
  1. CELEBREX [Suspect]
     Indication: BURSITIS
     Dates: start: 20060807, end: 20060811
  2. WARFARIN [Suspect]
  3. LANOXIN [Concomitant]
  4. FUROSEMIDE [Concomitant]
  5. POTASSIUM [Concomitant]
  6. ISOSORBIDE MONONITRATE [Concomitant]
  7. DOXAZOSIN [Concomitant]

REACTIONS (1)
  - HAEMORRHAGE URINARY TRACT [None]
